FAERS Safety Report 5043768-6 (Version None)
Quarter: 2006Q2

REPORT INFORMATION
  Report Type: 
  Country: None (occurrence: None)
  Receive Date: 20060629
  Receipt Date: 20060619
  Transmission Date: 20061013
  Serious: Yes (Other)
  Sender: FDA-Public Use
  Company Number: 2006077890

PATIENT
  Age: 70 Year
  Sex: Female
  Weight: 68.0396 kg

DRUGS (4)
  1. NORVASC [Suspect]
     Indication: HYPERTENSION
     Dosage: 10 MG (10 MG, FREQUENCY: QD INTERVAL, EVERY DAY)
     Dates: end: 20060618
  2. IBUPROFEN [Concomitant]
  3. LASIX [Concomitant]
  4. CALCIUM CHLORIDE (CALCIUM CHLORIDE ANHYDROUS) [Concomitant]

REACTIONS (2)
  - BLOOD PRESSURE INCREASED [None]
  - DRUG INEFFECTIVE [None]
